FAERS Safety Report 18209429 (Version 1)
Quarter: 2020Q3

REPORT INFORMATION
  Report Type: Spontaneous
  Country: AU (occurrence: AU)
  Receive Date: 20200828
  Receipt Date: 20200828
  Transmission Date: 20201103
  Serious: Yes (Other)
  Sender: FDA-Public Use
  Company Number: AU-ASTRAZENECA-2020SF07175

PATIENT
  Sex: Male

DRUGS (5)
  1. SALOFALK ENEMAS [Suspect]
     Active Substance: MESALAMINE
     Dosage: 4G PR AT NIGHT
     Route: 065
  2. CORTIMENT (HYDROCORTISONE ACETATE) [Suspect]
     Active Substance: HYDROCORTISONE ACETATE
     Route: 065
  3. IMURAN [Suspect]
     Active Substance: AZATHIOPRINE
     Route: 065
  4. NEXIUM [Suspect]
     Active Substance: ESOMEPRAZOLE MAGNESIUM
     Dosage: 20.0MG AS REQUIRED
     Route: 065
  5. MEZAVANT [Suspect]
     Active Substance: MESALAMINE
     Route: 065

REACTIONS (7)
  - Large intestine polyp [Unknown]
  - Gastrointestinal tract adenoma [Unknown]
  - Nausea [Unknown]
  - Sacroiliitis [Unknown]
  - Gastrooesophageal reflux disease [Unknown]
  - Diarrhoea haemorrhagic [Unknown]
  - Proctitis ulcerative [Unknown]
